FAERS Safety Report 7593261-1 (Version None)
Quarter: 2011Q3

REPORT INFORMATION
  Report Type: 
  Country: None (occurrence: None)
  Receive Date: 20110706
  Receipt Date: 20110623
  Transmission Date: 20111222
  Serious: Yes (Hospitalization)
  Sender: FDA-Public Use
  Company Number: FR-PFIZER INC-2008054533

PATIENT
  Age: 83 Year
  Sex: Female

DRUGS (14)
  1. PREDNISONE [Suspect]
     Dosage: 35 MG, 1X/DAY
     Route: 048
     Dates: end: 20080516
  2. PANTOPRAZOLE [Suspect]
     Dosage: EVERY DAY
     Route: 048
  3. POTASSIUM CHLORIDE [Concomitant]
     Route: 048
  4. PREDNISONE [Suspect]
     Dosage: 25 MG, UNK
     Route: 048
     Dates: start: 20080517, end: 20080531
  5. CALCIUM CARBONATE [Concomitant]
     Dosage: UNK
     Route: 048
  6. ZOLOFT [Suspect]
     Dosage: 1 DOSAGE FORM,EVERY DAY
     Route: 048
     Dates: end: 20080504
  7. PRITOR [Concomitant]
     Dosage: UNK
     Route: 048
  8. ALDACTAZIDE [Suspect]
     Dosage: 1 DOSAGE FORM,EVERY DAY
     Route: 048
     Dates: end: 20080504
  9. ZOPICLONE [Concomitant]
     Dosage: UNK
     Route: 048
  10. ASPEGIC 325 [Concomitant]
     Dosage: UNK
  11. ACTONEL [Concomitant]
     Dosage: UNK
  12. PREDNISONE [Suspect]
     Dosage: 50 MG, 2X/DAY
     Route: 048
     Dates: start: 20080301
  13. PREDNISONE [Suspect]
     Dosage: 20 MG, UNK
     Route: 048
     Dates: start: 20080601
  14. INNOHEP [Concomitant]
     Dosage: UNK

REACTIONS (9)
  - HYPONATRAEMIA [None]
  - DECREASED APPETITE [None]
  - VOMITING [None]
  - FALL [None]
  - ASTHENIA [None]
  - CONFUSIONAL STATE [None]
  - NAUSEA [None]
  - PERIORBITAL HAEMATOMA [None]
  - GENERAL PHYSICAL HEALTH DETERIORATION [None]
